FAERS Safety Report 5907105-4 (Version None)
Quarter: 2008Q4

REPORT INFORMATION
  Report Type: 
  Country: None (occurrence: None)
  Receive Date: 20081003
  Receipt Date: 20080925
  Transmission Date: 20090506
  Serious: Yes (Hospitalization)
  Sender: FDA-Public Use
  Company Number: AU-NOVOPROD-272348

PATIENT
  Sex: Female
  Weight: 66 kg

DRUGS (2)
  1. PROTAPHANE [Suspect]
     Indication: TYPE 1 DIABETES MELLITUS
     Dosage: 37 IU, QD
     Route: 058
     Dates: start: 20040709, end: 20080124
  2. NOVORAPID [Suspect]
     Indication: TYPE 1 DIABETES MELLITUS
     Dosage: 25 IU, QD
     Route: 058
     Dates: start: 20040709

REACTIONS (3)
  - FAILED INDUCTION OF LABOUR [None]
  - HYPOGLYCAEMIA [None]
  - PREMATURE LABOUR [None]
